FAERS Safety Report 11070726 (Version 1)
Quarter: 2015Q2

REPORT INFORMATION
  Report Type: Report from Study
  Country: CZ (occurrence: CZ)
  Receive Date: 20150427
  Receipt Date: 20150427
  Transmission Date: 20150821
  Serious: Yes (Hospitalization, Other)
  Sender: FDA-Public Use
  Company Number: CZ-BRISTOL-MYERS SQUIBB COMPANY-15850282

PATIENT
  Age: 66 Year
  Sex: Male

DRUGS (5)
  1. SODIUM CHLORIDE. [Concomitant]
     Active Substance: SODIUM CHLORIDE
     Dosage: 9 %, UNK
     Route: 042
     Dates: start: 20110622, end: 20110624
  2. TRIMECAINE HYDROCHLORIDE [Concomitant]
     Dosage: STRENGTH:1%
     Dates: start: 20110622, end: 20110624
  3. METAMIZOLE SODIUM [Concomitant]
     Active Substance: METAMIZOLE SODIUM
     Dosage: 5 ML, UNK
     Dates: start: 20110622, end: 20110624
  4. AMOXICILLIN. [Concomitant]
     Active Substance: AMOXICILLIN
     Dosage: UNK
     Dates: start: 20110613, end: 20110620
  5. IPILIMUMAB [Suspect]
     Active Substance: IPILIMUMAB
     Indication: PROSTATE CANCER
     Dosage: INTERR ON 22JUN2011,NO OF COURSE-3
     Route: 042
     Dates: start: 20110420

REACTIONS (2)
  - Subileus [Recovered/Resolved]
  - Hyperthyroidism [Recovered/Resolved]

NARRATIVE: CASE EVENT DATE: 20110620
